FAERS Safety Report 25250455 (Version 1)
Quarter: 2025Q2

REPORT INFORMATION
  Report Type: Report from Study
  Country: PT (occurrence: PT)
  Receive Date: 20250429
  Receipt Date: 20250429
  Transmission Date: 20250717
  Serious: Yes (Death, Other)
  Sender: AUROBINDO
  Company Number: PT-Desitin-2025-00758

PATIENT
  Age: 64 Year
  Sex: Female

DRUGS (3)
  1. ESLICARBAZEPINE ACETATE [Suspect]
     Active Substance: ESLICARBAZEPINE ACETATE
     Indication: Temporal lobe epilepsy
     Dosage: 800 MILLIGRAM, ONCE A DAY
     Route: 065
  2. LAMOTRIGINE [Suspect]
     Active Substance: LAMOTRIGINE
     Indication: Temporal lobe epilepsy
     Dosage: 150 MILLIGRAM, TWO TIMES A DAY
     Route: 065
  3. EZOGABINE [Suspect]
     Active Substance: EZOGABINE
     Indication: Temporal lobe epilepsy
     Dosage: 100 MILLIGRAM, 3 TIMES A DAY
     Route: 065

REACTIONS (2)
  - Status epilepticus [Fatal]
  - Product dose omission issue [Fatal]
